FAERS Safety Report 16157928 (Version 1)
Quarter: 2019Q2

REPORT INFORMATION
  Report Type: Spontaneous
  Country: US (occurrence: US)
  Receive Date: 20190404
  Receipt Date: 20190404
  Transmission Date: 20190711
  Serious: No
  Sender: FDA-Public Use
  Company Number: US-ASTRAZENECA-2019SE39190

PATIENT
  Age: 30 Year
  Sex: Male

DRUGS (4)
  1. JANUMET [Concomitant]
     Active Substance: METFORMIN HYDROCHLORIDE\SITAGLIPTIN PHOSPHATE
  2. FARXIGA [Suspect]
     Active Substance: DAPAGLIFLOZIN PROPANEDIOL
     Route: 048
     Dates: start: 201902
  3. GLIPIZIDE. [Concomitant]
     Active Substance: GLIPIZIDE
  4. FARXIGA [Suspect]
     Active Substance: DAPAGLIFLOZIN PROPANEDIOL
     Route: 048
     Dates: start: 2015, end: 2015

REACTIONS (5)
  - Blood glucose abnormal [Not Recovered/Not Resolved]
  - Pelvic pain [Recovering/Resolving]
  - Pollakiuria [Unknown]
  - Pruritus [Recovered/Resolved]
  - Therapy cessation [Unknown]

NARRATIVE: CASE EVENT DATE: 2015
